FAERS Safety Report 10203450 (Version 2)
Quarter: 2014Q2

REPORT INFORMATION
  Report Type: Spontaneous
  Country: US (occurrence: None)
  Receive Date: 20140523
  Receipt Date: 20140604
  Transmission Date: 20141212
  Serious: Yes (Other)
  Sender: FDA-Public Use
  Company Number: 2014-US-006034

PATIENT
  Age: 60 Year
  Sex: Female

DRUGS (1)
  1. XYREM [Suspect]
     Indication: FIBROMYALGIA
     Route: 048
     Dates: start: 200606, end: 2006

REACTIONS (5)
  - Surgery [None]
  - Off label use [None]
  - Carpal tunnel syndrome [None]
  - Thoracic outlet syndrome [None]
  - Cryptosporidiosis infection [None]
